FAERS Safety Report 15263993 (Version 1)
Quarter: 2018Q3

REPORT INFORMATION
  Report Type: Report from Study
  Country: GB (occurrence: GB)
  Receive Date: 20180810
  Receipt Date: 20180810
  Transmission Date: 20181010
  Serious: Yes (Hospitalization)
  Sender: FDA-Public Use
  Company Number: GB-ROCHE-2164777

PATIENT
  Sex: Female

DRUGS (10)
  1. CODEINE [Concomitant]
     Active Substance: CODEINE
  2. BENDROFLUMETHIAZIDE [Concomitant]
     Active Substance: BENDROFLUMETHIAZIDE
  3. LANSOPRAZOLE. [Concomitant]
     Active Substance: LANSOPRAZOLE
  4. COCODAMOL [Concomitant]
     Active Substance: ACETAMINOPHEN\CODEINE PHOSPHATE
  5. METHOTREXATE. [Concomitant]
     Active Substance: METHOTREXATE
  6. ATENOLOL. [Concomitant]
     Active Substance: ATENOLOL
  7. LOSARTAN. [Concomitant]
     Active Substance: LOSARTAN
  8. AMLODIPINE [Concomitant]
     Active Substance: AMLODIPINE BESYLATE
  9. ASPIRIN. [Concomitant]
     Active Substance: ASPIRIN
  10. ROACTEMRA [Suspect]
     Active Substance: TOCILIZUMAB
     Indication: RHEUMATOID ARTHRITIS
     Route: 058
     Dates: start: 20150205

REACTIONS (9)
  - Impaired healing [Unknown]
  - Drug ineffective [Unknown]
  - Nail disorder [Unknown]
  - Anaphylactic shock [Unknown]
  - Arthralgia [Unknown]
  - Laceration [Unknown]
  - Gait inability [Unknown]
  - Cardiac arrest [Unknown]
  - Rheumatoid arthritis [Unknown]
